FAERS Safety Report 6469398-7 (Version None)
Quarter: 2009Q4

REPORT INFORMATION
  Report Type: 
  Country: None (occurrence: None)
  Receive Date: 20091203
  Receipt Date: 20080130
  Transmission Date: 20100525
  Serious: Yes (Death, Hospitalization)
  Sender: FDA-Public Use
  Company Number: JP-ELI_LILLY_AND_COMPANY-JP200709006356

PATIENT
  Sex: Male
  Weight: 68.3 kg

DRUGS (4)
  1. PEMETREXED [Suspect]
     Indication: PLEURAL MESOTHELIOMA MALIGNANT
     Dosage: 750 MG, OTHER
     Route: 042
     Dates: start: 20070522, end: 20070802
  2. CISPLATIN [Suspect]
     Indication: PLEURAL MESOTHELIOMA MALIGNANT
     Dosage: 100 MG, OTHER
     Route: 042
     Dates: start: 20070522, end: 20070802
  3. FOLIC ACID [Concomitant]
     Dosage: 1 G, DAILY (1/D)
     Route: 048
     Dates: start: 20070510, end: 20070811
  4. VITAMIN B12 NOS [Concomitant]
     Dosage: 1 MG, OTHER
     Route: 030
     Dates: start: 20070510, end: 20070712

REACTIONS (2)
  - BACTERAEMIA [None]
  - INJECTION SITE INFECTION [None]
